FAERS Safety Report 8796917 (Version 1)
Quarter: 2012Q4

REPORT INFORMATION
  Report Type: 
  Country: US (occurrence: US)
  Receive Date: 20120920
  Receipt Date: 20120920
  Transmission Date: 20130627
  Serious: Yes (Other)
  Sender: FDA-Public Use
  Company Number: PHEH2012US018008

PATIENT
  Sex: Female

DRUGS (6)
  1. RECLAST [Suspect]
     Dosage: UNK
     Route: 042
     Dates: start: 201108
  2. KEPPRA [Concomitant]
  3. NEURONTIN [Concomitant]
  4. XANAX [Concomitant]
  5. BENTYL [Concomitant]
  6. LEVOTHYROXINE [Concomitant]

REACTIONS (13)
  - Multiple fractures [Unknown]
  - Spinal fracture [Unknown]
  - Device breakage [Unknown]
  - Fall [Unknown]
  - Convulsion [Unknown]
  - Myocardial infarction [Unknown]
  - Aphagia [Unknown]
  - Dysstasia [Unknown]
  - Malaise [Unknown]
  - Vomiting [Unknown]
  - Nausea [Unknown]
  - Oedema peripheral [Unknown]
  - Pain in extremity [Unknown]
